APPROVED DRUG PRODUCT: ISMOTIC
Active Ingredient: ISOSORBIDE
Strength: 100GM/220ML
Dosage Form/Route: SOLUTION;ORAL
Application: N017063 | Product #001
Applicant: ALCON LABORATORIES INC
Approved: Approved Prior to Jan 1, 1982 | RLD: No | RS: No | Type: DISCN